FAERS Safety Report 21437783 (Version 1)
Quarter: 2022Q4

REPORT INFORMATION
  Report Type: Spontaneous
  Country: IT (occurrence: IT)
  Receive Date: 20221011
  Receipt Date: 20221011
  Transmission Date: 20230112
  Serious: Yes (Death, Hospitalization, Other)
  Sender: FDA-Public Use
  Company Number: IT-AMGEN-ITASP2022173183

PATIENT
  Age: 31 Year
  Sex: Male

DRUGS (1)
  1. BLINATUMOMAB [Suspect]
     Active Substance: BLINATUMOMAB
     Indication: B-cell type acute leukaemia
     Dosage: UNK
     Route: 065

REACTIONS (5)
  - Acute lymphocytic leukaemia recurrent [Fatal]
  - Disease complication [Fatal]
  - Leukaemic retinopathy [Unknown]
  - Central nervous system leukaemia [Unknown]
  - Therapy non-responder [Unknown]
